FAERS Safety Report 24176365 (Version 2)
Quarter: 2024Q3

REPORT INFORMATION
  Report Type: Report from Study
  Country: US (occurrence: US)
  Receive Date: 20240806
  Receipt Date: 20240827
  Transmission Date: 20241016
  Serious: Yes (Hospitalization)
  Sender: AMGEN
  Company Number: US-AMGEN-USASP2024154019

PATIENT
  Age: 56 Year
  Sex: Female

DRUGS (3)
  1. OTEZLA [Suspect]
     Active Substance: APREMILAST
     Indication: Psoriasis
     Dosage: 30 MILLIGRAM, BID
     Route: 048
     Dates: start: 2021, end: 2024
  2. OTEZLA [Suspect]
     Active Substance: APREMILAST
     Dosage: WAS TO BREAK THE PILL IN HALF AND TAKE A LITTLE EACH DAY
     Route: 048
     Dates: start: 202408
  3. AVONEX [Concomitant]
     Active Substance: INTERFERON BETA-1A
     Dosage: 30 MICROGRAM

REACTIONS (10)
  - Nephrolithiasis [Unknown]
  - Dyspepsia [Unknown]
  - Hepatic enzyme abnormal [Unknown]
  - Abdominal discomfort [Unknown]
  - Urinary tract infection [Unknown]
  - Fungal infection [Unknown]
  - Gastrooesophageal reflux disease [Unknown]
  - Pharyngitis [Unknown]
  - Psoriasis [Unknown]
  - Off label use [Unknown]

NARRATIVE: CASE EVENT DATE: 20210101
